FAERS Safety Report 4697842-4 (Version None)
Quarter: 2005Q2

REPORT INFORMATION
  Report Type: 
  Country: None (occurrence: None)
  Receive Date: 20050621
  Receipt Date: 20050621
  Transmission Date: 20051028
  Serious: Yes (Hospitalization)
  Sender: FDA-Public Use
  Company Number: None

PATIENT
  Age: 59 Year
  Sex: Male
  Weight: 93 kg

DRUGS (2)
  1. ETODOLAC [Suspect]
     Indication: BACK PAIN
     Dosage: 400MG   TID   ORAL
     Route: 048
     Dates: start: 20030527, end: 20050513
  2. ETODOLAC [Suspect]
     Indication: OSTEOARTHRITIS
     Dosage: 400MG   TID   ORAL
     Route: 048
     Dates: start: 20030527, end: 20050513

REACTIONS (2)
  - ANAEMIA [None]
  - GASTRITIS EROSIVE [None]
